FAERS Safety Report 4558822-2 (Version None)
Quarter: 2005Q1

REPORT INFORMATION
  Report Type: 
  Country: None (occurrence: None)
  Receive Date: 20050121
  Receipt Date: 20050112
  Transmission Date: 20050727
  Serious: Yes (Hospitalization)
  Sender: FDA-Public Use
  Company Number: ES-GLAXOSMITHKLINE-B0364788A

PATIENT
  Age: 67 Year
  Sex: Female

DRUGS (6)
  1. REQUIP [Suspect]
     Indication: PARKINSON'S DISEASE
     Dosage: 20MG PER DAY
     Route: 048
     Dates: start: 19990101
  2. NOBRITOL [Suspect]
     Indication: DEPRESSION
     Route: 048
  3. LEVODOPA + BENSERAZIDE [Concomitant]
     Indication: PARKINSON'S DISEASE
     Route: 048
     Dates: start: 19940101
  4. LEVOTIROXINA [Concomitant]
     Indication: HYPERTHYROIDISM
     Dosage: 100MG PER DAY
     Route: 048
  5. ATENOLOL [Concomitant]
     Indication: MYOCARDIAL ISCHAEMIA
     Dosage: 50MG PER DAY
     Route: 048
     Dates: start: 20040501
  6. SIMVASTATIN [Concomitant]
     Indication: HYPERLIPIDAEMIA
     Dosage: 10MG PER DAY
     Route: 048
     Dates: start: 20040501

REACTIONS (1)
  - PNEUMONITIS [None]
